FAERS Safety Report 18953442 (Version 1)
Quarter: 2021Q1

REPORT INFORMATION
  Report Type: Spontaneous
  Country: GB (occurrence: GB)
  Receive Date: 20210301
  Receipt Date: 20210301
  Transmission Date: 20210420
  Serious: No
  Sender: FDA-Public Use
  Company Number: None

PATIENT
  Age: 56 Year
  Sex: Male
  Weight: 75 kg

DRUGS (1)
  1. TRULICITY [Suspect]
     Active Substance: DULAGLUTIDE

REACTIONS (15)
  - Dysgeusia [None]
  - Dysstasia [None]
  - Chapped lips [None]
  - Asthenia [None]
  - Dyspnoea [None]
  - Choking [None]
  - Vomiting [None]
  - Gait inability [None]
  - Chest discomfort [None]
  - Sleep disorder [None]
  - Emotional disorder [None]
  - Dry mouth [None]
  - Eructation [None]
  - Flatulence [None]
  - Nausea [None]
